FAERS Safety Report 7641843-0 (Version None)
Quarter: 2011Q3

REPORT INFORMATION
  Report Type: 
  Country: None (occurrence: None)
  Receive Date: 20110728
  Receipt Date: 20110715
  Transmission Date: 20111222
  Serious: Yes (Other)
  Sender: FDA-Public Use
  Company Number: DE-ROCHE-791988

PATIENT
  Sex: Female

DRUGS (2)
  1. AVASTIN [Suspect]
     Dosage: ALREADY 6 CYCLES GIVEN
     Route: 042
  2. PACLITAXEL [Concomitant]
     Dosage: ALREADY 6 CYCLES GIVEN
     Route: 042

REACTIONS (2)
  - MUCOSAL INFLAMMATION [None]
  - EPISTAXIS [None]
